FAERS Safety Report 10168961 (Version 2)
Quarter: 2014Q2

REPORT INFORMATION
  Report Type: Spontaneous
  Country: DE (occurrence: DE)
  Receive Date: 20140513
  Receipt Date: 20140523
  Transmission Date: 20141212
  Serious: Yes (Hospitalization, Other)
  Sender: FDA-Public Use
  Company Number: DE-AMGEN-DEUSP2014033660

PATIENT
  Age: 45 Year
  Sex: Female
  Weight: 58 kg

DRUGS (10)
  1. NEULASTA [Suspect]
     Indication: PROPHYLAXIS
     Dosage: 6 MG, Q2WK
     Route: 042
     Dates: start: 20140110, end: 20140110
  2. NEULASTA [Suspect]
     Indication: SUPPORTIVE CARE
  3. PACLITAX NAB [Suspect]
     Indication: BREAST CANCER
     Dosage: 535 MG, Q2WK
     Route: 042
     Dates: start: 20140109
  4. HERCEPTIN [Suspect]
     Indication: BREAST CANCER
     Dosage: 348 MG, 2QW
     Route: 042
     Dates: start: 20140109
  5. EPIRUBICIN [Suspect]
     Indication: BREAST CANCER
     Dosage: 243 MG, 2QW
     Route: 042
     Dates: start: 20131129
  6. OMEPRAZOL                          /00661201/ [Concomitant]
     Dosage: 20 MG, UNK
     Dates: start: 20140103
  7. DEXAMETHASON                       /00016001/ [Concomitant]
     Dosage: 4 MG, UNK
     Dates: start: 20140109, end: 20140109
  8. TAVEGIL                            /00137201/ [Concomitant]
     Dosage: 2 MG, UNK
     Dates: start: 20140109, end: 20140109
  9. ZANIC [Concomitant]
     Dosage: 50 MG, UNK
     Dates: start: 20140109, end: 20140109
  10. ONDANSETRON [Concomitant]
     Dosage: 8 MG, UNK
     Dates: start: 20140109, end: 20140109

REACTIONS (3)
  - Pyrexia [Recovered/Resolved]
  - Leukocytosis [Unknown]
  - Sinusitis [Unknown]
